FAERS Safety Report 5336599-0 (Version None)
Quarter: 2007Q2

REPORT INFORMATION
  Report Type: 
  Country: None (occurrence: None)
  Receive Date: 20070529
  Receipt Date: 20070521
  Transmission Date: 20071010
  Serious: Yes (Other)
  Sender: FDA-Public Use
  Company Number: US-JNJFOC-20070505386

PATIENT
  Sex: Male

DRUGS (2)
  1. REMICADE [Suspect]
     Indication: IRITIS
     Route: 042
  2. REMICADE [Suspect]
     Indication: ANKYLOSING SPONDYLITIS
     Dosage: 800 MG EVERY FOUR WEEKS FOR ^OVER TWO YEARS^
     Route: 042

REACTIONS (2)
  - DEAFNESS BILATERAL [None]
  - TINNITUS [None]
